FAERS Safety Report 5655606-9 (Version None)
Quarter: 2008Q1

REPORT INFORMATION
  Report Type: 
  Country: None (occurrence: None)
  Receive Date: 20080303
  Receipt Date: 20080226
  Transmission Date: 20080703
  Serious: No
  Sender: FDA-Public Use
  Company Number: GB-BRACCO-000001

PATIENT
  Sex: Female

DRUGS (7)
  1. NIOPAM [Suspect]
     Indication: COMPUTERISED TOMOGRAM
     Route: 042
     Dates: start: 20071119, end: 20071119
  2. NIOPAM [Suspect]
     Indication: EFFUSION
     Route: 042
     Dates: start: 20071119, end: 20071119
  3. NIOPAM [Suspect]
     Indication: PYREXIA
     Route: 042
     Dates: start: 20071119, end: 20071119
  4. NIOPAM [Suspect]
     Indication: C-REACTIVE PROTEIN INCREASED
     Route: 042
     Dates: start: 20071119, end: 20071119
  5. I.V. SOLUTIONS [Concomitant]
     Route: 042
  6. HYDROCORTISON                      /00028601/ [Concomitant]
     Route: 065
  7. PIRITON [Concomitant]
     Route: 065

REACTIONS (1)
  - SKIN REACTION [None]
